FAERS Safety Report 20549150 (Version 1)
Quarter: 2022Q1

REPORT INFORMATION
  Report Type: Report from Study
  Country: DO (occurrence: DO)
  Receive Date: 20220303
  Receipt Date: 20220303
  Transmission Date: 20220424
  Serious: Yes (Hospitalization, Other)
  Sender: FDA-Public Use
  Company Number: DO-ABBVIE-21K-279-4097969-00

PATIENT
  Sex: Female
  Weight: 90.800 kg

DRUGS (2)
  1. HUMIRA [Suspect]
     Active Substance: ADALIMUMAB
     Indication: Rheumatoid arthritis
     Route: 058
     Dates: start: 20140429, end: 20210715
  2. ISONIAZID [Suspect]
     Active Substance: ISONIAZID
     Indication: Product used for unknown indication
     Route: 065
     Dates: start: 2021

REACTIONS (11)
  - Pulmonary fibrosis [Not Recovered/Not Resolved]
  - Toxicity to various agents [Recovering/Resolving]
  - Hepatitis toxic [Unknown]
  - Interferon gamma level increased [Unknown]
  - Mycobacterium tuberculosis complex test positive [Recovering/Resolving]
  - Exposure to communicable disease [Unknown]
  - Painful respiration [Not Recovered/Not Resolved]
  - Hepatic enzyme increased [Not Recovered/Not Resolved]
  - Chromaturia [Recovered/Resolved]
  - Jaundice [Recovered/Resolved]
  - Fibrin D dimer increased [Recovering/Resolving]

NARRATIVE: CASE EVENT DATE: 20210101
